FAERS Safety Report 5407318-4 (Version None)
Quarter: 2007Q3

REPORT INFORMATION
  Report Type: 
  Country: None (occurrence: None)
  Receive Date: 20070807
  Receipt Date: 20070726
  Transmission Date: 20080115
  Serious: Yes (Hospitalization, Other)
  Sender: FDA-Public Use
  Company Number: GT-ROCHE-504596

PATIENT
  Age: 63 Year
  Sex: Female

DRUGS (2)
  1. BONIVA [Suspect]
     Indication: OSTEOPOROSIS
     Route: 048
     Dates: start: 20070228, end: 20070601
  2. CALCIUM CHLORIDE [Concomitant]
     Indication: OSTEOPOROSIS
     Dates: start: 20070228, end: 20070601

REACTIONS (2)
  - COLONIC OBSTRUCTION [None]
  - COLORECTAL CANCER [None]
